FAERS Safety Report 21345898 (Version 1)
Quarter: 2022Q3

REPORT INFORMATION
  Report Type: Spontaneous
  Country: CN (occurrence: CN)
  Receive Date: 20220916
  Receipt Date: 20220916
  Transmission Date: 20221027
  Serious: Yes (Other)
  Sender: FDA-Public Use
  Company Number: CN-AMERICAN REGENT INC-2022002679

PATIENT
  Age: 43 Year
  Sex: Female

DRUGS (1)
  1. VENOFER [Suspect]
     Active Substance: IRON SUCROSE
     Indication: Anaemia
     Dosage: DILUTED IN 100ML OF SODIUM CHLORIDE INJECTION (200 MG,1 IN 1 D)
     Dates: start: 20220825, end: 20220825

REACTIONS (7)
  - Temperature intolerance [Recovered/Resolved]
  - Chills [Recovered/Resolved]
  - Pyrexia [Recovered/Resolved]
  - Chest discomfort [Recovered/Resolved]
  - Vomiting [Recovered/Resolved]
  - Nausea [Recovered/Resolved]
  - Blood pressure decreased [Unknown]

NARRATIVE: CASE EVENT DATE: 20220825
